FAERS Safety Report 22594794 (Version 1)
Quarter: 2023Q2

REPORT INFORMATION
  Report Type: Spontaneous
  Country: US (occurrence: US)
  Receive Date: 20230613
  Receipt Date: 20230613
  Transmission Date: 20230721
  Serious: Yes (Other)
  Sender: FDA-Public Use
  Company Number: US-BAYER-2023A078186

PATIENT
  Age: 16 Year
  Sex: Female

DRUGS (2)
  1. ASPIRIN [Suspect]
     Active Substance: ASPIRIN
  2. VALGANCICLOVIR [Concomitant]
     Active Substance: VALGANCICLOVIR

REACTIONS (6)
  - Acute kidney injury [None]
  - Intentional overdose [None]
  - Nausea [None]
  - Vomiting [None]
  - Tinnitus [None]
  - Toxicity to various agents [None]
